FAERS Safety Report 6055913-4 (Version None)
Quarter: 2009Q1

REPORT INFORMATION
  Report Type: 
  Country: None (occurrence: None)
  Receive Date: 20090128
  Receipt Date: 20090119
  Transmission Date: 20090719
  Serious: Yes (Other)
  Sender: FDA-Public Use
  Company Number: PHEH2009US00914

PATIENT
  Sex: Female

DRUGS (2)
  1. FEMARA [Suspect]
     Dosage: UNK
     Dates: start: 20080101
  2. RECLAST [Suspect]
     Dosage: UNK
     Dates: start: 20081101

REACTIONS (2)
  - ARTHRITIS [None]
  - MYALGIA [None]
